FAERS Safety Report 21205099 (Version 1)
Quarter: 2022Q3

REPORT INFORMATION
  Report Type: Spontaneous
  Country: AU (occurrence: AU)
  Receive Date: 20220812
  Receipt Date: 20220812
  Transmission Date: 20221027
  Serious: Yes (Life-Threatening, Hospitalization)
  Sender: FDA-Public Use
  Company Number: AU-GENERIC HEALTH PTY. LTD.-2022-10178

PATIENT
  Age: 36 Year
  Sex: Male

DRUGS (13)
  1. ETHAMBUTOL HYDROCHLORIDE [Suspect]
     Active Substance: ETHAMBUTOL HYDROCHLORIDE
     Indication: Disseminated tuberculosis
     Dosage: UNK
     Route: 065
  2. RIFAMPIN [Suspect]
     Active Substance: RIFAMPIN
     Indication: Disseminated tuberculosis
     Dosage: UNK
     Route: 065
  3. PYRAZINAMIDE [Suspect]
     Active Substance: PYRAZINAMIDE
     Indication: Disseminated tuberculosis
     Dosage: UNK
     Route: 065
  4. PREDNISOLONE [Suspect]
     Active Substance: PREDNISOLONE
     Indication: Disseminated tuberculosis
     Dosage: UNK
     Route: 048
  5. MOXIFLOXACIN [Suspect]
     Active Substance: MOXIFLOXACIN
     Indication: Disseminated tuberculosis
     Dosage: UNK, ADMINISTERED HIGH DOSE
     Route: 065
  6. AMIKACIN [Suspect]
     Active Substance: AMIKACIN
     Indication: Disseminated tuberculosis
     Dosage: UNK
     Route: 065
  7. PROTIONAMIDE [Suspect]
     Active Substance: PROTIONAMIDE
     Indication: Disseminated tuberculosis
     Dosage: UNK
     Route: 065
  8. LINEZOLID [Suspect]
     Active Substance: LINEZOLID
     Indication: Disseminated tuberculosis
     Dosage: UNK
     Route: 065
  9. ISONIAZID [Concomitant]
     Active Substance: ISONIAZID
     Indication: Disseminated tuberculosis
     Dosage: UNK
     Route: 065
  10. DEXAMETHASONE [Concomitant]
     Active Substance: DEXAMETHASONE
     Indication: Disseminated tuberculosis
     Dosage: UNK, ADMINISTERED HIGH DOSE
     Route: 042
  11. BEDAQUILINE [Concomitant]
     Active Substance: BEDAQUILINE
     Indication: Disseminated tuberculosis
     Dosage: UNK
     Route: 065
  12. CLOFAZIMINE [Concomitant]
     Active Substance: CLOFAZIMINE
     Indication: Disseminated tuberculosis
     Dosage: UNK
     Route: 065
  13. INFLIXIMAB [Concomitant]
     Active Substance: INFLIXIMAB
     Indication: Disseminated tuberculosis
     Dosage: UNK 10 MG/KG MONTHLY ADMINISTERED 3 DOSES
     Route: 065

REACTIONS (1)
  - Drug resistance [Unknown]
